FAERS Safety Report 7245349-2 (Version None)
Quarter: 2011Q1

REPORT INFORMATION
  Report Type: 
  Country: None (occurrence: None)
  Receive Date: 20110126
  Receipt Date: 20110120
  Transmission Date: 20110831
  Serious: Yes (Other)
  Sender: FDA-Public Use
  Company Number: JP-ROCHE-755117

PATIENT
  Age: 49 Year
  Sex: Male

DRUGS (1)
  1. ROCEPHIN [Suspect]
     Dosage: DOSAGE IS UNCERTAIN.
     Route: 042
     Dates: start: 20090401, end: 20090401

REACTIONS (1)
  - INTERSTITIAL LUNG DISEASE [None]
